FAERS Safety Report 25253087 (Version 7)
Quarter: 2025Q2

REPORT INFORMATION
  Report Type: Spontaneous
  Country: ES (occurrence: ES)
  Receive Date: 20250430
  Receipt Date: 20250620
  Transmission Date: 20250717
  Serious: Yes (Hospitalization, Other)
  Sender: TAKEDA
  Company Number: None

PATIENT
  Age: 60 Year
  Sex: Male
  Weight: 83 kg

DRUGS (18)
  1. VELCADE [Suspect]
     Active Substance: BORTEZOMIB
     Indication: Plasma cell myeloma
  2. VELCADE [Suspect]
     Active Substance: BORTEZOMIB
  3. VELCADE [Suspect]
     Active Substance: BORTEZOMIB
  4. VELCADE [Suspect]
     Active Substance: BORTEZOMIB
  5. DEXAMETHASONE [Concomitant]
     Active Substance: DEXAMETHASONE
     Indication: Product used for unknown indication
  6. DEXAMETHASONE [Concomitant]
     Active Substance: DEXAMETHASONE
  7. DEXAMETHASONE [Concomitant]
     Active Substance: DEXAMETHASONE
  8. DEXAMETHASONE [Concomitant]
     Active Substance: DEXAMETHASONE
  9. DEXAMETHASONE [Concomitant]
     Active Substance: DEXAMETHASONE
  10. DEXAMETHASONE [Concomitant]
     Active Substance: DEXAMETHASONE
  11. DARATUMUMAB [Concomitant]
     Active Substance: DARATUMUMAB
     Indication: Product used for unknown indication
  12. DARATUMUMAB [Concomitant]
     Active Substance: DARATUMUMAB
  13. DARATUMUMAB [Concomitant]
     Active Substance: DARATUMUMAB
  14. DARATUMUMAB [Concomitant]
     Active Substance: DARATUMUMAB
  15. LENALIDOMIDE [Concomitant]
     Active Substance: LENALIDOMIDE
     Indication: Product used for unknown indication
  16. LENALIDOMIDE [Concomitant]
     Active Substance: LENALIDOMIDE
  17. LENALIDOMIDE [Concomitant]
     Active Substance: LENALIDOMIDE
  18. LENALIDOMIDE [Concomitant]
     Active Substance: LENALIDOMIDE

REACTIONS (6)
  - Intestinal perforation [Recovered/Resolved]
  - Gastrointestinal motility disorder [Unknown]
  - Diverticulitis [Recovering/Resolving]
  - Autonomic neuropathy [Recovered/Resolved]
  - Constipation [Recovered/Resolved]
  - Ileus paralytic [Recovered/Resolved]

NARRATIVE: CASE EVENT DATE: 20231229
